FAERS Safety Report 23138224 (Version 1)
Quarter: 2023Q4

REPORT INFORMATION
  Report Type: Spontaneous
  Country: CN (occurrence: CN)
  Receive Date: 20231102
  Receipt Date: 20231102
  Transmission Date: 20240110
  Serious: Yes (Hospitalization)
  Sender: FDA-Public Use
  Company Number: CN-PFIZER INC-PV202300175978

PATIENT
  Sex: Female
  Weight: 55 kg

DRUGS (2)
  1. DALTEPARIN SODIUM [Suspect]
     Active Substance: DALTEPARIN SODIUM
     Indication: Deep vein thrombosis
     Dosage: 5000 IU, 2X/DAY
     Route: 058
     Dates: start: 20231008, end: 20231009
  2. ASPIRIN [Concomitant]
     Active Substance: ASPIRIN
     Indication: Therapeutic procedure
     Dosage: 100 MG, 1X/DAY
     Route: 048
     Dates: start: 20230925, end: 20231020

REACTIONS (2)
  - Haematochezia [Recovering/Resolving]
  - Haemoglobin decreased [Recovering/Resolving]

NARRATIVE: CASE EVENT DATE: 20231009
